FAERS Safety Report 26143813 (Version 1)
Quarter: 2025Q4

REPORT INFORMATION
  Report Type: Report from Study
  Country: BR (occurrence: BR)
  Receive Date: 20251211
  Receipt Date: 20251211
  Transmission Date: 20260117
  Serious: Yes (Other)
  Sender: TAKEDA
  Company Number: BR-TAKEDA-2025TUS086953

PATIENT
  Age: 50 Year
  Sex: Female

DRUGS (1)
  1. VEDOLIZUMAB [Suspect]
     Active Substance: VEDOLIZUMAB
     Indication: Colitis ulcerative
     Dosage: 300 MILLIGRAM

REACTIONS (26)
  - Eye pain [Recovered/Resolved]
  - Pain [Recovered/Resolved]
  - Blood pressure fluctuation [Recovered/Resolved]
  - Dizziness [Unknown]
  - Headache [Recovered/Resolved]
  - Eye swelling [Unknown]
  - Weight abnormal [Recovered/Resolved]
  - Anxiety [Unknown]
  - Vertigo [Unknown]
  - Mood swings [Recovered/Resolved]
  - Irritability [Recovered/Resolved]
  - Depressed mood [Recovered/Resolved]
  - Discouragement [Recovered/Resolved]
  - Stress [Unknown]
  - Inappropriate schedule of product administration [Unknown]
  - Social problem [Recovered/Resolved]
  - Decreased immune responsiveness [Unknown]
  - Impaired work ability [Unknown]
  - Abdominal pain upper [Recovered/Resolved]
  - Rectal tenesmus [Recovered/Resolved]
  - Anger [Recovered/Resolved]
  - Malaise [Unknown]
  - Blood pressure increased [Unknown]
  - Fatigue [Recovered/Resolved]
  - Arthralgia [Unknown]
  - Sinusitis [Unknown]
